FAERS Safety Report 4564657-7 (Version None)
Quarter: 2005Q1

REPORT INFORMATION
  Report Type: 
  Country: None (occurrence: None)
  Receive Date: 20050126
  Receipt Date: 20050117
  Transmission Date: 20050727
  Serious: Yes (Hospitalization)
  Sender: FDA-Public Use
  Company Number: 2005CG00142

PATIENT
  Age: 23 Year
  Sex: Male

DRUGS (6)
  1. NEXIUM [Suspect]
     Dates: start: 20040816, end: 20040830
  2. PRODILANTIN [Suspect]
     Dates: start: 20040826, end: 20040827
  3. TRANXENE [Suspect]
     Dates: start: 20040828, end: 20040901
  4. DI-HYDAN [Suspect]
     Dosage: 300 MG QD PO
     Route: 048
     Dates: start: 20040826, end: 20040909
  5. BACTRIM DS [Suspect]
     Indication: ESCHERICHIA URINARY TRACT INFECTION
     Dates: start: 20040903, end: 20040909
  6. LEPTICUR [Suspect]
     Dates: start: 20040826, end: 20040826

REACTIONS (7)
  - ANOREXIA [None]
  - ASTHENIA [None]
  - ESCHERICHIA URINARY TRACT INFECTION [None]
  - MALAISE [None]
  - MICROCYTOSIS [None]
  - PANCYTOPENIA [None]
  - PYREXIA [None]
